FAERS Safety Report 14149064 (Version 1)
Quarter: 2017Q4

REPORT INFORMATION
  Report Type: Spontaneous
  Country: PL (occurrence: PL)
  Receive Date: 20171101
  Receipt Date: 20171101
  Transmission Date: 20180321
  Serious: Yes (Disabling)
  Sender: FDA-Public Use
  Company Number: PL-SYMPLMED PHARMACEUTICALS-2017SYMPLMED000481

PATIENT

DRUGS (5)
  1. TERTENSIF SR [Concomitant]
     Indication: PRODUCT USED FOR UNKNOWN INDICATION
     Dosage: 1.5 MG, UNK
  2. BISOCARD [Concomitant]
     Active Substance: BISOPROLOL
     Indication: PRODUCT USED FOR UNKNOWN INDICATION
     Dosage: UNK
  3. CO-PRESTARIUM [Suspect]
     Active Substance: AMLODIPINE\PERINDOPRIL
     Indication: HYPERTENSION
     Dosage: 0.5 (10MG/5MG) TABLET, QD
     Route: 065
     Dates: start: 201612
  4. PRESTARIUM /00790703/ [Suspect]
     Active Substance: PERINDOPRIL ARGININE
     Indication: HYPERTENSION
     Dosage: 0.5 (5MG) TABLET, QD
     Route: 065
     Dates: start: 201612
  5. LACIPIL [Concomitant]
     Active Substance: LACIDIPINE
     Indication: PRODUCT USED FOR UNKNOWN INDICATION
     Dosage: UNK

REACTIONS (7)
  - Extravasation [Recovered/Resolved]
  - Ageusia [Not Recovered/Not Resolved]
  - Rhinitis [Recovered/Resolved]
  - Anosmia [Not Recovered/Not Resolved]
  - Oral disorder [Not Recovered/Not Resolved]
  - Product use issue [Unknown]
  - Cough [Unknown]

NARRATIVE: CASE EVENT DATE: 201701
